FAERS Safety Report 9954115 (Version 2)
Quarter: 2014Q1

REPORT INFORMATION
  Report Type: Spontaneous
  Country: JP (occurrence: JP)
  Receive Date: 20140304
  Receipt Date: 20140304
  Transmission Date: 20141002
  Serious: Yes (Death, Hospitalization)
  Sender: FDA-Public Use
  Company Number: JP-009507513-0903USA00503

PATIENT
  Age: 80 Year
  Sex: Female
  Weight: 38 kg

DRUGS (7)
  1. KIPRES [Suspect]
     Indication: PRODUCT USED FOR UNKNOWN INDICATION
     Dosage: 10 MG, QD
     Route: 048
     Dates: end: 20090303
  2. PREMINENT TABLETS [Suspect]
     Dosage: 0.5, QD
     Route: 048
     Dates: start: 20071219, end: 20090213
  3. WARFARIN [Suspect]
     Indication: HYPERTROPHIC CARDIOMYOPATHY
     Dosage: 2 MG, QD
     Route: 048
     Dates: end: 20090303
  4. WARFARIN [Suspect]
     Indication: ATRIAL FIBRILLATION
  5. SELOKEN [Suspect]
     Indication: HYPERTROPHIC CARDIOMYOPATHY
     Dosage: 20 MG, BID
     Route: 048
     Dates: end: 20090303
  6. SELOKEN [Suspect]
     Indication: ATRIAL FIBRILLATION
  7. OMEPRAL [Suspect]
     Indication: GASTRITIS
     Dosage: 20 MG, QD
     Route: 048
     Dates: end: 20090303

REACTIONS (1)
  - Interstitial lung disease [Fatal]
